FAERS Safety Report 5897576-4 (Version None)
Quarter: 2008Q3

REPORT INFORMATION
  Report Type: 
  Country: None (occurrence: None)
  Receive Date: 20080829
  Receipt Date: 20080630
  Transmission Date: 20090109
  Serious: Yes (Death)
  Sender: FDA-Public Use
  Company Number: PHEH2007US15497

PATIENT
  Age: 78 Year
  Sex: Male
  Weight: 65.8 kg

DRUGS (8)
  1. EXJADE [Suspect]
     Indication: IRON OVERLOAD
     Dosage: 1000 MG, QD, ORAL
     Route: 048
     Dates: start: 20070613, end: 20071101
  2. MEGESTROL ACETATE [Concomitant]
  3. VITAMIN B12 [Concomitant]
  4. METFORMIN HCL [Concomitant]
  5. FLOMAX [Concomitant]
  6. ALBUTEROL [Concomitant]
  7. CHLORHEXIDINE GLUCONATE [Concomitant]
  8. VITAMIN B6 [Concomitant]

REACTIONS (11)
  - ACUTE MYELOID LEUKAEMIA [None]
  - BLOOD GLUCOSE INCREASED [None]
  - BLOOD LACTATE DEHYDROGENASE DECREASED [None]
  - HAEMATOCRIT DECREASED [None]
  - HAEMOGLOBIN DECREASED [None]
  - HYPOALBUMINAEMIA [None]
  - HYPOCALCAEMIA [None]
  - HYPONATRAEMIA [None]
  - PLATELET COUNT DECREASED [None]
  - RED BLOOD CELL COUNT DECREASED [None]
  - WHITE BLOOD CELL COUNT INCREASED [None]
